FAERS Safety Report 4712835-6 (Version None)
Quarter: 2005Q3

REPORT INFORMATION
  Report Type: 
  Country: None (occurrence: None)
  Receive Date: 20050713
  Receipt Date: 20050613
  Transmission Date: 20060218
  Serious: Yes (Life-Threatening, Hospitalization, Other)
  Sender: FDA-Public Use
  Company Number: GB-BOEHRINGER INGELHEIM PHARMACEUTICALS, INC.-2005-UK-01054UK

PATIENT
  Age: 52 Year
  Sex: Female

DRUGS (8)
  1. DIXARIT (00015/5014R) [Suspect]
     Indication: MIGRAINE
     Route: 048
     Dates: end: 20041116
  2. DIXARIT (00015/5014R) [Suspect]
     Route: 048
     Dates: end: 20050615
  3. METFORMIN [Concomitant]
     Route: 048
  4. FERSADAY [Concomitant]
     Route: 048
  5. ACTONEL [Concomitant]
     Dosage: 35 MG ONCE WEEKLY
     Route: 048
     Dates: start: 20050201
  6. FLUOXETINE [Concomitant]
     Route: 048
  7. PREDNISOLONE [Concomitant]
     Dosage: 40MG ONCE DAILY
     Route: 048
     Dates: start: 20050601
  8. BECLOMETHASONE INHALER [Concomitant]
     Dosage: 2 PUFFS TWICE DAILY
     Route: 055

REACTIONS (1)
  - PULMONARY FIBROSIS [None]
